FAERS Safety Report 7002272-6 (Version None)
Quarter: 2010Q3

REPORT INFORMATION
  Report Type: 
  Country: None (occurrence: None)
  Receive Date: 20100920
  Receipt Date: 20100618
  Transmission Date: 20110219
  Serious: Yes (Hospitalization)
  Sender: FDA-Public Use
  Company Number: US-ASTRAZENECA-2010SE23480

PATIENT
  Age: 54 Year
  Sex: Female
  Weight: 68 kg

DRUGS (9)
  1. SEROQUEL [Suspect]
     Indication: SLEEP DISORDER
     Route: 048
     Dates: start: 20060101, end: 20090801
  2. SEROQUEL [Suspect]
     Indication: POST-TRAUMATIC STRESS DISORDER
     Route: 048
     Dates: start: 20060101, end: 20090801
  3. SEROQUEL [Suspect]
     Route: 048
     Dates: start: 20090801, end: 20090801
  4. SEROQUEL [Suspect]
     Route: 048
     Dates: start: 20090801, end: 20090801
  5. SEROQUEL [Suspect]
     Route: 048
     Dates: start: 20090801
  6. SEROQUEL [Suspect]
     Route: 048
     Dates: start: 20090801
  7. XANAX [Concomitant]
  8. PROZAC [Concomitant]
  9. TEGRETOL [Concomitant]
     Indication: GRAND MAL CONVULSION

REACTIONS (8)
  - ABASIA [None]
  - CATATONIA [None]
  - DRUG DOSE OMISSION [None]
  - HALLUCINATION [None]
  - INSOMNIA [None]
  - MEMORY IMPAIRMENT [None]
  - SPEECH DISORDER [None]
  - SUICIDE ATTEMPT [None]
